FAERS Safety Report 7413738-9 (Version None)
Quarter: 2011Q2

REPORT INFORMATION
  Report Type: 
  Country: None (occurrence: None)
  Receive Date: 20110413
  Receipt Date: 20110413
  Transmission Date: 20111010
  Serious: Yes (Other)
  Sender: FDA-Public Use
  Company Number: NL-ABBOTT-10P-114-0683968-00

PATIENT
  Sex: Female
  Weight: 74 kg

DRUGS (3)
  1. VITAMIN B-12 [Concomitant]
     Indication: VITAMIN B12
     Route: 030
     Dates: start: 20090101
  2. HUMIRA [Suspect]
     Indication: CROHN'S DISEASE
     Route: 058
     Dates: start: 20101005, end: 20101019
  3. HUMIRA [Suspect]
     Dates: start: 20101128

REACTIONS (4)
  - OSTEITIS [None]
  - DRUG DOSE OMISSION [None]
  - ABSCESS JAW [None]
  - SWELLING FACE [None]
